FAERS Safety Report 8895234 (Version 1)
Quarter: 2012Q4

REPORT INFORMATION
  Report Type: 
  Country: US (occurrence: US)
  Receive Date: 20121107
  Receipt Date: 20121107
  Transmission Date: 20130627
  Serious: No
  Sender: FDA-Public Use
  Company Number: US-AMGEN-USASP2011061894

PATIENT
  Age: 54 Year
  Sex: Female

DRUGS (10)
  1. ENBREL [Suspect]
     Indication: ANKYLOSING SPONDYLITIS
     Dosage: 50 mg, qwk
     Dates: start: 20110207
  2. XANAX XR [Concomitant]
     Dosage: 1 mg, UNK
  3. VITAMIN E                          /00110501/ [Concomitant]
  4. BISOPROLOL FUMARATE AND HYDROCHLOROTHIAZIDE [Concomitant]
     Dosage: 300 mg, UNK
  5. MULTIVITAMIN AND MINERAL [Concomitant]
  6. VITAMIN D /00107901/ [Concomitant]
  7. ADDERALL [Concomitant]
     Dosage: 30 mg, UNK
  8. VITAMIN B12                        /00056201/ [Concomitant]
  9. CALCIUM + VITAMIN D [Concomitant]
  10. MAGNESIUM [Concomitant]
     Dosage: 500 mg, UNK

REACTIONS (5)
  - Influenza like illness [Recovered/Resolved]
  - Ankylosing spondylitis [Unknown]
  - Sinusitis [Not Recovered/Not Resolved]
  - Urinary tract infection [Not Recovered/Not Resolved]
  - Staphylococcal infection [Unknown]
